FAERS Safety Report 8900571 (Version 4)
Quarter: 2013Q2

REPORT INFORMATION
  Report Type: Spontaneous
  Country: US (occurrence: US)
  Receive Date: 20121109
  Receipt Date: 20130423
  Transmission Date: 20140414
  Serious: No
  Sender: FDA-Public Use
  Company Number: US-009507513-1210USA013537

PATIENT
  Age: 54 Year
  Sex: Female
  Weight: 78.91 kg

DRUGS (1)
  1. PEGINTRON [Suspect]
     Indication: HEPATITIS C
     Dosage: 120 MICROGRAM, QW
     Dates: start: 20121012

REACTIONS (8)
  - Euphoric mood [Unknown]
  - Feeling of relaxation [Recovering/Resolving]
  - Injection site bruising [Recovering/Resolving]
  - Therapeutic response unexpected [Unknown]
  - Application site rash [Recovering/Resolving]
  - Incorrect dose administered [Unknown]
  - Influenza like illness [Recovered/Resolved]
  - Fatigue [Unknown]
